FAERS Safety Report 24666408 (Version 2)
Quarter: 2024Q4

REPORT INFORMATION
  Report Type: Spontaneous
  Country: US (occurrence: US)
  Receive Date: 20241126
  Receipt Date: 20241209
  Transmission Date: 20250115
  Serious: No
  Sender: KYOWA
  Company Number: US-KYOWAKIRIN-2024KK026642

PATIENT

DRUGS (3)
  1. CRYSVITA [Suspect]
     Active Substance: BUROSUMAB-TWZA
     Indication: Hereditary hypophosphataemic rickets
     Dosage: 50 MG, 1X/4 WEEKS
     Route: 058
     Dates: start: 202407
  2. CRYSVITA [Suspect]
     Active Substance: BUROSUMAB-TWZA
     Indication: Hereditary hypophosphataemic rickets
     Dosage: 50 MG, 1X/4 WEEKS
     Route: 058
     Dates: start: 202407
  3. HYPO [Concomitant]
     Indication: Product used for unknown indication
     Dosage: UNK NEEDLE 25G X 5/8^
     Route: 065

REACTIONS (1)
  - Therapeutic response shortened [Unknown]
